FAERS Safety Report 6476056-1 (Version None)
Quarter: 2009Q4

REPORT INFORMATION
  Report Type: 
  Country: None (occurrence: None)
  Receive Date: 20091204
  Receipt Date: 20091123
  Transmission Date: 20100525
  Serious: Yes (Hospitalization)
  Sender: FDA-Public Use
  Company Number: US-AMGEN-US376131

PATIENT
  Age: 67 Year
  Sex: Male
  Weight: 109 kg

DRUGS (5)
  1. PANITUMUMAB [Suspect]
     Indication: NEOPLASM MALIGNANT
     Dates: start: 20091026
  2. FLUOROURACIL [Suspect]
     Route: 042
     Dates: start: 20091026
  3. RADIATION THERAPY [Suspect]
     Dates: start: 20091026
  4. DEXAMETHASONE TAB [Suspect]
  5. DOXYCYCLINE [Suspect]

REACTIONS (7)
  - DEHYDRATION [None]
  - FATIGUE [None]
  - LYMPHOPENIA [None]
  - NAUSEA [None]
  - OESOPHAGEAL ULCER [None]
  - OESOPHAGITIS [None]
  - VOMITING [None]
